FAERS Safety Report 23159518 (Version 1)
Quarter: 2023Q4

REPORT INFORMATION
  Report Type: Spontaneous
  Country: GB (occurrence: GB)
  Receive Date: 20231108
  Receipt Date: 20231108
  Transmission Date: 20240109
  Serious: Yes (Other)
  Sender: FDA-Public Use
  Company Number: None

PATIENT
  Age: 72 Year
  Sex: Male
  Weight: 86 kg

DRUGS (11)
  1. DOXAZOSIN [Suspect]
     Active Substance: DOXAZOSIN MESYLATE
     Indication: Product used for unknown indication
     Dosage: 1 MILLIGRAM DAILY; UNIT DOSE : 1 MG, OD, THERAPY END DATE : NASK
     Route: 065
     Dates: start: 20230926
  2. AMLODIPINE [Concomitant]
     Active Substance: AMLODIPINE BESYLATE
     Indication: Product used for unknown indication
     Dosage: 1 DOSAGE FORMS DAILY; UNIT DOSE : 1 DF, OD
     Dates: start: 20210808
  3. BENDROFLUMETHIAZIDE [Concomitant]
     Active Substance: BENDROFLUMETHIAZIDE
     Indication: Product used for unknown indication
     Dosage: 1 DOSAGE FORMS DAILY; MORNING, UNIT DOSE: 1 DF, OD, DURATION : 35 DAYS
     Dates: start: 20230822, end: 20230926
  4. BETAMETHASONE VALERATE [Concomitant]
     Active Substance: BETAMETHASONE VALERATE
     Indication: Product used for unknown indication
     Dosage: MIX WITH TACROLIMUS FOR FIRST 2-3 DAYS APPLICATION
     Dates: start: 20231026
  5. CETRABEN [Concomitant]
     Indication: Product used for unknown indication
     Dosage: APPLY TWO TO FOUR TIMES, EMOLLIENT CREAM, FREQUENCY TIME : 1 DAY
     Dates: start: 20231026
  6. DERMOL [Concomitant]
     Active Substance: BENZALKONIUM CHLORIDE\CHLORHEXIDINE HYDROCHLORIDE\ISOPROPYL MYRISTATE\PARAFFIN
     Indication: Product used for unknown indication
     Dosage: USE AS DIRECTED FOR WASHING, ONLY WHEN INFECTION IS PRESENT OR RECURRENT. AVOID REGULAR USE.
     Dates: start: 20231026
  7. FEXOFENADINE [Concomitant]
     Active Substance: FEXOFENADINE HYDROCHLORIDE
     Indication: Product used for unknown indication
     Dosage: 1 DOSAGE FORMS DAILY; UNIT DOSE: 1 DF, OD
     Dates: start: 20231026
  8. FLUCLOXACILLIN [Concomitant]
     Active Substance: FLUCLOXACILLIN
     Indication: Product used for unknown indication
     Dosage: 4 DOSAGE FORMS DAILY; UNIT DOSE : 1 DF, 4 TIMES A DAY, DURATION : 7 DAYS
     Dates: start: 20231013, end: 20231020
  9. PREDNISOLONE [Concomitant]
     Active Substance: PREDNISOLONE
     Indication: Product used for unknown indication
     Dosage: 6 DOSAGE FORMS DAILY; FOR 7 DAYS. THEN REDUCE DO...UNIT DOSE : 6 DF, OD
     Dates: start: 20231026
  10. SIMVASTATIN [Concomitant]
     Active Substance: SIMVASTATIN
     Indication: Product used for unknown indication
     Dosage: 1 DOSAGE FORMS DAILY; NIGHT, UNIT DOSE: 1 DF, OD
     Dates: start: 20210808
  11. TACROLIMUS [Concomitant]
     Active Substance: TACROLIMUS
     Indication: Product used for unknown indication
     Dosage: 2 DOSAGE FORMS DAILY; APPLY THINLY UNTIL LESION CLEARS, R...UNIT DOSE : 1 DF, BD
     Dates: start: 20231026

REACTIONS (1)
  - Angioedema [Not Recovered/Not Resolved]
